FAERS Safety Report 24692803 (Version 1)
Quarter: 2024Q4

REPORT INFORMATION
  Report Type: Spontaneous
  Country: KR (occurrence: KR)
  Receive Date: 20241203
  Receipt Date: 20241203
  Transmission Date: 20250114
  Serious: Yes (Hospitalization)
  Sender: BRISTOL-MYERS SQUIBB COMPANY
  Company Number: KR-BRISTOL-MYERS SQUIBB COMPANY-2024-186761

PATIENT
  Age: 60 Year
  Sex: Male
  Weight: 63.3 kg

DRUGS (13)
  1. ELIQUIS [Suspect]
     Active Substance: APIXABAN
     Indication: Pulmonary embolism
     Dates: start: 20201218
  2. RABEPRAZOLE SODIUM [Concomitant]
     Active Substance: RABEPRAZOLE SODIUM
     Indication: Gastritis prophylaxis
     Dates: start: 20210222
  3. OFLOXACIN [Concomitant]
     Active Substance: OFLOXACIN
     Indication: Ear infection
     Dates: start: 20201223
  4. LAFUTIDINE [Concomitant]
     Active Substance: LAFUTIDINE
     Indication: Gastritis prophylaxis
     Dates: start: 20210219
  5. ACETAMINOPHEN [Concomitant]
     Active Substance: ACETAMINOPHEN
     Indication: Ear infection
     Dates: start: 20201218
  6. ACETAMINOPHEN [Concomitant]
     Active Substance: ACETAMINOPHEN
     Indication: Myalgia
     Dates: start: 20201218
  7. TRAMADOL HYDROCHLORIDE [Concomitant]
     Active Substance: TRAMADOL HYDROCHLORIDE
     Indication: Myalgia
     Dates: start: 20201218
  8. LORAZEPAM [Concomitant]
     Active Substance: LORAZEPAM
     Indication: Prophylaxis
     Dates: start: 20210201, end: 20210228
  9. AMBROXOL ACEFYLLINATE [Concomitant]
     Active Substance: AMBROXOL ACEFYLLINATE
     Indication: Prophylaxis
     Dates: start: 20210107
  10. METOCLOPRAMIDE HYDROCHLORIDE [Concomitant]
     Active Substance: METOCLOPRAMIDE HYDROCHLORIDE
     Indication: Gastritis prophylaxis
     Dates: start: 20201221, end: 20210228
  11. POLYETHYLENE GLYCOL 400 [Concomitant]
     Active Substance: POLYETHYLENE GLYCOL 400
     Indication: Ear infection
     Dosage: DILAURATE
     Dates: start: 20201219, end: 20210225
  12. LACTULOSE [Concomitant]
     Active Substance: LACTULOSE
     Indication: Constipation prophylaxis
     Dosage: CONCENTRATE SOLUTION
     Dates: start: 20201218, end: 20201221
  13. PANTOPRAZOLE SODIUM [Concomitant]
     Active Substance: PANTOPRAZOLE SODIUM
     Indication: Gastritis prophylaxis
     Dosage: DILAURATE
     Dates: start: 20201218, end: 20210105

REACTIONS (2)
  - Drug eruption [Recovered/Resolved]
  - Dermatitis [Recovered/Resolved]

NARRATIVE: CASE EVENT DATE: 20210407
